FAERS Safety Report 7213001-5 (Version None)
Quarter: 2011Q1

REPORT INFORMATION
  Report Type: 
  Country: None (occurrence: None)
  Receive Date: 20110106
  Receipt Date: 20101220
  Transmission Date: 20110831
  Serious: Yes (Death)
  Sender: FDA-Public Use
  Company Number: A0903055A

PATIENT

DRUGS (1)
  1. AVANDIA [Suspect]
     Indication: DIABETES MELLITUS
     Route: 048

REACTIONS (5)
  - INJURY [None]
  - DEATH [None]
  - ANHEDONIA [None]
  - EMOTIONAL DISTRESS [None]
  - ECONOMIC PROBLEM [None]
